FAERS Safety Report 17005745 (Version 1)
Quarter: 2019Q4

REPORT INFORMATION
  Report Type: Spontaneous
  Country: US (occurrence: US)
  Receive Date: 20190926
  Receipt Date: 20190926
  Transmission Date: 20200122
  Serious: Yes (Hospitalization)
  Sender: FDA-Public Use
  Company Number: None

PATIENT
  Age: 58 Year
  Sex: Male

DRUGS (12)
  1. BACLOFEN. [Concomitant]
     Active Substance: BACLOFEN
  2. DALFAMPRIDINE 10MG [Suspect]
     Active Substance: DALFAMPRIDINE
     Indication: MULTIPLE SCLEROSIS
     Route: 048
     Dates: start: 20181003
  3. MAGNESIUM-OS [Concomitant]
  4. F INACEA [Concomitant]
  5. GENTAMICIN. [Concomitant]
     Active Substance: GENTAMICIN
  6. HUMALOG [Concomitant]
     Active Substance: INSULIN LISPRO
  7. SIMIVASTATIN [Concomitant]
  8. VITAMIN B12 [Concomitant]
     Active Substance: CYANOCOBALAMIN
  9. BACTRIM [Concomitant]
     Active Substance: SULFAMETHOXAZOLE\TRIMETHOPRIM
  10. COLESTIPOL [Concomitant]
     Active Substance: COLESTIPOL
  11. CEROVITE [Concomitant]
     Active Substance: FOLIC ACID\IRON
  12. VITAMIN D3 [Concomitant]
     Active Substance: CHOLECALCIFEROL

REACTIONS (1)
  - Urinary tract infection [None]

NARRATIVE: CASE EVENT DATE: 20190916
